FAERS Safety Report 8805953 (Version 1)
Quarter: 2012Q4

REPORT INFORMATION
  Report Type: Spontaneous
  Country: US (occurrence: None)
  Receive Date: 20120919
  Receipt Date: 20120919
  Transmission Date: 20130627
  Serious: No
  Sender: FDA-Public Use
  Company Number: None

PATIENT
  Age: 50 Year
  Sex: Female
  Weight: 52.16 kg

DRUGS (1)
  1. PAXIL [Suspect]
     Dosage: 1 tablet Daily po
     Route: 048
     Dates: start: 19900111, end: 20120901

REACTIONS (1)
  - Cough [None]
